FAERS Safety Report 11374328 (Version 1)
Quarter: 2015Q3

REPORT INFORMATION
  Report Type: Spontaneous
  Country: US (occurrence: None)
  Receive Date: 20150804
  Receipt Date: 20150804
  Transmission Date: 20151125
  Serious: Yes (Disabling, Other)
  Sender: FDA-Public Use
  Company Number: US-SEPTODONT-201402352

PATIENT
  Age: 53 Year
  Sex: Male
  Weight: 84 kg

DRUGS (1)
  1. SEPTOCAINE AND EPINEPHRINE [Suspect]
     Active Substance: ARTICAINE HYDROCHLORIDE\EPINEPHRINE BITARTRATE
     Indication: LOCAL ANAESTHESIA
     Dosage: DENTAL
     Dates: start: 20110119, end: 20110119

REACTIONS (8)
  - Pallor [None]
  - Headache [None]
  - Visual acuity reduced [None]
  - Incorrect route of drug administration [None]
  - Tinnitus [None]
  - Brain stem syndrome [None]
  - Blindness transient [None]
  - Paraesthesia [None]

NARRATIVE: CASE EVENT DATE: 20110119
